FAERS Safety Report 8988861 (Version 1)
Quarter: 2012Q4

REPORT INFORMATION
  Report Type: 
  Country: US (occurrence: US)
  Receive Date: 20121228
  Receipt Date: 20121228
  Transmission Date: 20130627
  Serious: Yes (Other)
  Sender: FDA-Public Use
  Company Number: US-PAR PHARMACEUTICAL, INC-2012SCPR004796

PATIENT

DRUGS (1)
  1. MINOCYCLINE HCL (WATSON LABORATORIES) [Suspect]
     Indication: ACNE
     Dosage: UNK, Unknown
     Route: 065

REACTIONS (3)
  - Arteritis [Recovered/Resolved]
  - Lymphocytic infiltration [Recovered/Resolved]
  - Lupus-like syndrome [Not Recovered/Not Resolved]
